FAERS Safety Report 9371814 (Version 2)
Quarter: 2013Q4

REPORT INFORMATION
  Report Type: Spontaneous
  Country: TR (occurrence: TR)
  Receive Date: 20130627
  Receipt Date: 20131004
  Transmission Date: 20140711
  Serious: Yes (Other)
  Sender: FDA-Public Use
  Company Number: TR-AMGEN-TURSP2013044923

PATIENT
  Age: 15 Year
  Sex: Male

DRUGS (3)
  1. ENBREL [Suspect]
     Indication: JUVENILE IDIOPATHIC ARTHRITIS
     Dosage: 25 MG, WEEKLY
     Route: 058
     Dates: start: 20101014
  2. ENBREL [Suspect]
     Dosage: 25 MG, WEEKLY
     Route: 058
     Dates: start: 20130611
  3. ENBREL [Suspect]
     Dosage: 25 MG, WEEKLY
     Route: 058
     Dates: start: 20130924

REACTIONS (5)
  - Pulmonary oedema [Not Recovered/Not Resolved]
  - Pharyngeal oedema [Recovered/Resolved]
  - Oedema [Not Recovered/Not Resolved]
  - Lymphadenopathy [Recovering/Resolving]
  - Nasopharyngitis [Recovered/Resolved]
